FAERS Safety Report 4603961-0 (Version None)
Quarter: 2005Q1

REPORT INFORMATION
  Report Type: 
  Country: None (occurrence: None)
  Receive Date: 20050308
  Receipt Date: 20050308
  Transmission Date: 20050727
  Serious: Yes (Hospitalization)
  Sender: FDA-Public Use
  Company Number: None

PATIENT
  Age: 72 Year
  Sex: Male
  Weight: 66.6 kg

DRUGS (1)
  1. AMANTADINE [Suspect]
     Dosage: 100 MG PO QD INC TO TID
     Route: 048

REACTIONS (2)
  - HALLUCINATION, VISUAL [None]
  - PARANOIA [None]
